FAERS Safety Report 15946190 (Version 46)
Quarter: 2023Q1

REPORT INFORMATION
  Report Type: Spontaneous
  Country: GB (occurrence: GB)
  Receive Date: 20190211
  Receipt Date: 20230214
  Transmission Date: 20230418
  Serious: Yes (Life-Threatening, Hospitalization, Disabling, Other)
  Sender: FDA-Public Use
  Company Number: None

PATIENT
  Age: 56 Year
  Sex: Female
  Weight: 80 kg

DRUGS (19)
  1. OMEPRAZOLE [Interacting]
     Active Substance: OMEPRAZOLE
     Indication: Gastrooesophageal reflux disease
     Route: 048
     Dates: start: 20190118, end: 20190120
  2. OMEPRAZOLE [Interacting]
     Active Substance: OMEPRAZOLE
     Indication: Reflux laryngitis
  3. TRIMETHOPRIM [Interacting]
     Active Substance: TRIMETHOPRIM
     Indication: Urinary tract infection
     Route: 048
     Dates: start: 20190118, end: 20190120
  4. TRIMETHOPRIM [Interacting]
     Active Substance: TRIMETHOPRIM
     Route: 048
     Dates: start: 20190118
  5. TRIMETHOPRIM [Interacting]
     Active Substance: TRIMETHOPRIM
     Route: 048
  6. TRIMETHOPRIM [Interacting]
     Active Substance: TRIMETHOPRIM
     Route: 048
     Dates: start: 20190118
  7. TRIMETHOPRIM [Interacting]
     Active Substance: TRIMETHOPRIM
     Route: 048
     Dates: start: 20190118, end: 20190120
  8. TRIMETHOPRIM [Interacting]
     Active Substance: TRIMETHOPRIM
     Route: 048
     Dates: end: 20190120
  9. TRIMETHOPRIM [Interacting]
     Active Substance: TRIMETHOPRIM
     Route: 065
  10. SOLIFENACIN [Interacting]
     Active Substance: SOLIFENACIN
     Indication: Product used for unknown indication
     Route: 048
  11. SOLIFENACIN [Interacting]
     Active Substance: SOLIFENACIN
     Route: 065
  12. MODERNA COVID-19 VACCINE [Interacting]
     Active Substance: ELASOMERAN
     Indication: Product used for unknown indication
     Dosage: DOSE 3B
     Dates: start: 20211204, end: 20211204
  13. DOMPERIDONE [Interacting]
     Active Substance: DOMPERIDONE
     Indication: Product used for unknown indication
     Route: 048
  14. LANSOPRAZOLE [Interacting]
     Active Substance: LANSOPRAZOLE
     Indication: Product used for unknown indication
     Route: 048
  15. DULOXETINE [Concomitant]
     Active Substance: DULOXETINE
     Indication: Product used for unknown indication
     Route: 065
  16. DULOXETINE [Concomitant]
     Active Substance: DULOXETINE
     Route: 065
  17. BECLOMETHASONE DIPROPIONATE [Concomitant]
     Active Substance: BECLOMETHASONE DIPROPIONATE
     Indication: Product used for unknown indication
     Route: 065
  18. BECLOMETHASONE DIPROPIONATE [Concomitant]
     Active Substance: BECLOMETHASONE DIPROPIONATE
     Route: 065
  19. TRIMETHOPRIM [Concomitant]
     Active Substance: TRIMETHOPRIM
     Indication: Urinary tract infection
     Route: 065

REACTIONS (21)
  - Food poisoning [Not Recovered/Not Resolved]
  - Condition aggravated [Unknown]
  - Contusion [Not Recovered/Not Resolved]
  - Feeling abnormal [Unknown]
  - Gastrointestinal pain [Not Recovered/Not Resolved]
  - Nightmare [Not Recovered/Not Resolved]
  - Blood sodium decreased [Unknown]
  - Blood potassium decreased [Unknown]
  - Peripheral swelling [Unknown]
  - Vomiting [Unknown]
  - Malaise [Unknown]
  - Illness [Recovering/Resolving]
  - Irritable bowel syndrome [Unknown]
  - Genital ulceration [Recovered/Resolved]
  - Drug interaction [Unknown]
  - Oral pain [Recovered/Resolved]
  - Genital pain [Recovered/Resolved]
  - Mucosal inflammation [Recovered/Resolved]
  - Diarrhoea [Recovered/Resolved]
  - Abdominal pain [Recovered/Resolved]
  - Abdominal pain upper [Recovering/Resolving]

NARRATIVE: CASE EVENT DATE: 20190121
